FAERS Safety Report 23755470 (Version 4)
Quarter: 2024Q2

REPORT INFORMATION
  Report Type: Report from Study
  Country: US (occurrence: US)
  Receive Date: 20240418
  Receipt Date: 20240531
  Transmission Date: 20240716
  Serious: Yes (Hospitalization, Other)
  Sender: FDA-Public Use
  Company Number: US-ARGENX-2023-ARGX-US003429

PATIENT

DRUGS (4)
  1. VYVGART HYTRULO [Suspect]
     Active Substance: EFGARTIGIMOD ALFA\HYALURONIDASE-QVFC
     Indication: Myasthenia gravis
     Dosage: UNK
     Route: 058
  2. VYVGART HYTRULO [Suspect]
     Active Substance: EFGARTIGIMOD ALFA\HYALURONIDASE-QVFC
     Dosage: UNK
     Route: 058
     Dates: start: 20231006
  3. VYVGART HYTRULO [Suspect]
     Active Substance: EFGARTIGIMOD ALFA\HYALURONIDASE-QVFC
     Dosage: UNK
     Route: 058
     Dates: start: 20231027
  4. IVIGLOB EX [Concomitant]
     Active Substance: HUMAN IMMUNOGLOBULIN G
     Indication: Product used for unknown indication
     Dosage: UNK
     Route: 065

REACTIONS (18)
  - Hospitalisation [Unknown]
  - Fall [Unknown]
  - Injury [Unknown]
  - Thrombosis [Unknown]
  - Leg amputation [Unknown]
  - Myasthenia gravis [Unknown]
  - Fall [Unknown]
  - Back injury [Unknown]
  - Feeling jittery [Unknown]
  - Respiratory disorder [Unknown]
  - Oxygen saturation decreased [Unknown]
  - Therapy interrupted [Unknown]
  - Injection site pain [Unknown]
  - Fatigue [Unknown]
  - COVID-19 [Unknown]
  - Procedural pain [Unknown]
  - Skin disorder [Unknown]
  - Post procedural constipation [Unknown]

NARRATIVE: CASE EVENT DATE: 20231106
